FAERS Safety Report 17549530 (Version 1)
Quarter: 2020Q1

REPORT INFORMATION
  Report Type: Spontaneous
  Country: ES (occurrence: ES)
  Receive Date: 20200317
  Receipt Date: 20200317
  Transmission Date: 20200409
  Serious: Yes (Hospitalization, Other)
  Sender: FDA-Public Use
  Company Number: ES-GLAXOSMITHKLINE-ES2020042136

PATIENT
  Sex: Female

DRUGS (6)
  1. BOOSTRIX POLIO [Suspect]
     Active Substance: DIPHTHERIA AND TETANUS TOXOIDS AND ACELLULAR PERTUSSIS ADSORBED AND INACTIVATED POLIOVIRUS VACCINE
     Indication: PROPHYLAXIS
     Route: 015
     Dates: start: 20191108, end: 20191108
  2. METOCLOPRAMIDA [Suspect]
     Active Substance: METOCLOPRAMIDE HYDROCHLORIDE
     Indication: HYPEREMESIS GRAVIDARUM
     Route: 015
     Dates: start: 20190701, end: 20190926
  3. RANITIDINE. [Suspect]
     Active Substance: RANITIDINE
     Indication: HYPEREMESIS GRAVIDARUM
     Route: 015
     Dates: start: 20190701, end: 20190718
  4. CARIBAN [Concomitant]
     Indication: HYPEREMESIS GRAVIDARUM
     Dosage: 10 MG
     Route: 015
     Dates: start: 20190618
  5. VAXIGRIPTETRA [Suspect]
     Active Substance: INFLUENZA VIRUS VACCINE QUADRIVALENT TYPE A+B
     Indication: PROPHYLAXIS
     Route: 015
     Dates: start: 20191108, end: 20191108
  6. ONDANSETRON [Suspect]
     Active Substance: ONDANSETRON
     Indication: HYPEREMESIS GRAVIDARUM
     Route: 015
     Dates: start: 20190704, end: 20190709

REACTIONS (2)
  - Foetal growth restriction [Recovering/Resolving]
  - Foetal exposure during pregnancy [Recovered/Resolved]

NARRATIVE: CASE EVENT DATE: 2019
